FAERS Safety Report 4897096-X (Version None)
Quarter: 2005Q4

REPORT INFORMATION
  Report Type: 
  Country: None (occurrence: None)
  Receive Date: 20051228
  Receipt Date: 20050609
  Transmission Date: 20060501
  Serious: Yes (Death, Life-Threatening, Other)
  Sender: FDA-Public Use
  Company Number: USA0506100122

PATIENT
  Age: 66 Year
  Sex: Female

DRUGS (2)
  1. HUMULIN R [Suspect]
     Dosage: 200 U/1 DAY
     Dates: start: 20050602
  2. LANTUS [Concomitant]

REACTIONS (1)
  - HYPOGLYCAEMIA [None]
